FAERS Safety Report 4831814-1 (Version None)
Quarter: 2005Q4

REPORT INFORMATION
  Report Type: 
  Country: None (occurrence: None)
  Receive Date: 20051118
  Receipt Date: 20050923
  Transmission Date: 20060501
  Serious: Yes (Other)
  Sender: FDA-Public Use
  Company Number: DE-BRISTOL-MYERS SQUIBB COMPANY-13141528

PATIENT
  Age: 30 Year
  Sex: Female

DRUGS (1)
  1. VIDEX [Suspect]
     Dates: start: 19990901

REACTIONS (7)
  - COORDINATION ABNORMAL [None]
  - LIPOATROPHY [None]
  - NAUSEA [None]
  - OSTEOLYSIS [None]
  - POLYNEUROPATHY [None]
  - VOMITING [None]
  - WEIGHT DECREASED [None]
